FAERS Safety Report 19310512 (Version 2)
Quarter: 2021Q2

REPORT INFORMATION
  Report Type: Spontaneous
  Country: GB (occurrence: GB)
  Receive Date: 20210526
  Receipt Date: 20210624
  Transmission Date: 20210717
  Serious: Yes (Life-Threatening, Hospitalization, Other)
  Sender: FDA-Public Use
  Company Number: GB-PFIZER INC-2021582374

PATIENT
  Age: 43 Year
  Sex: Female
  Weight: 97 kg

DRUGS (9)
  1. DEXAMETHASONE. [Concomitant]
     Active Substance: DEXAMETHASONE
     Indication: ILL-DEFINED DISORDER
     Dosage: UNK
  2. DOMPERIDONE [Concomitant]
     Active Substance: DOMPERIDONE
     Indication: ILL-DEFINED DISORDER
     Dosage: UNK
  3. KEPPRA [Concomitant]
     Active Substance: LEVETIRACETAM
     Indication: ILL-DEFINED DISORDER
     Dosage: UNK
  4. VINCRISTINE SULFATE. [Suspect]
     Active Substance: VINCRISTINE SULFATE
     Indication: ASTROCYTOMA MALIGNANT
     Dosage: 2 MG
     Route: 042
     Dates: start: 20210414, end: 20210414
  5. ONDANSETRON HYDROCHLORIDE. [Concomitant]
     Active Substance: ONDANSETRON HYDROCHLORIDE
     Indication: ILL-DEFINED DISORDER
     Dosage: UNK
  6. IBUPROFEN. [Concomitant]
     Active Substance: IBUPROFEN
     Indication: ILL-DEFINED DISORDER
     Dosage: UNK
  7. THYROXINE [Concomitant]
     Active Substance: LEVOTHYROXINE
     Indication: ILL-DEFINED DISORDER
     Dosage: UNK
  8. PROCARBAZINE [Suspect]
     Active Substance: PROCARBAZINE
     Indication: ASTROCYTOMA MALIGNANT
     Dosage: 200 MG
     Route: 048
     Dates: start: 20210414, end: 20210423
  9. LOMUSTINE. [Suspect]
     Active Substance: LOMUSTINE
     Indication: ASTROCYTOMA MALIGNANT
     Dosage: UNK
     Route: 048
     Dates: start: 20210414, end: 20210414

REACTIONS (3)
  - Toxic epidermal necrolysis [Recovering/Resolving]
  - Pancytopenia [Unknown]
  - Sepsis [Unknown]

NARRATIVE: CASE EVENT DATE: 20210424
